FAERS Safety Report 4408313-4 (Version None)
Quarter: 2004Q3

REPORT INFORMATION
  Report Type: 
  Country: None (occurrence: None)
  Receive Date: 20040722
  Receipt Date: 20040712
  Transmission Date: 20050211
  Serious: Yes (Life-Threatening, Other)
  Sender: FDA-Public Use
  Company Number: 2004046740

PATIENT
  Age: 70 Year
  Sex: Male

DRUGS (8)
  1. NEURONTIN [Suspect]
     Indication: EPILEPSY
     Dosage: ORAL
     Route: 048
     Dates: start: 20040101
  2. CIPROFLOXACIN [Suspect]
     Indication: WOUND INFECTION
     Dosage: UNKNOWN
     Route: 065
     Dates: start: 20040525
  3. TRAMADOL HCL [Suspect]
     Indication: PAIN
     Dosage: UNKNOWN
     Route: 065
     Dates: start: 20040501
  4. FOLIC ACID [Suspect]
     Indication: ILL-DEFINED DISORDER
     Dosage: UNKNOWN
     Route: 065
  5. PHENPROCOUMON (PHENPROCOUMON) [Concomitant]
  6. ESOMEPRAZOLE (ESOMEPRAZOLE) [Concomitant]
  7. ACETAMINOPHEN [Concomitant]
  8. CARBAMAZEPINE [Concomitant]

REACTIONS (5)
  - FRACTURE [None]
  - PAIN [None]
  - POSTOPERATIVE INFECTION [None]
  - ROAD TRAFFIC ACCIDENT [None]
  - STATUS EPILEPTICUS [None]
